FAERS Safety Report 7743945-7 (Version None)
Quarter: 2011Q3

REPORT INFORMATION
  Report Type: 
  Country: None (occurrence: None)
  Receive Date: 20110912
  Receipt Date: 20110822
  Transmission Date: 20111222
  Serious: Yes (Hospitalization)
  Sender: FDA-Public Use
  Company Number: DE-GLAXOSMITHKLINE-B0743504A

PATIENT
  Age: 43 Year
  Sex: Male

DRUGS (3)
  1. ROPINIROLE [Suspect]
     Indication: RESTLESS LEGS SYNDROME
     Route: 065
  2. ESCITALOPRAM [Concomitant]
     Indication: DEPRESSION
     Route: 065
  3. QUETIAPINE [Concomitant]
     Indication: SLEEP DISORDER
     Route: 065

REACTIONS (2)
  - PATHOLOGICAL GAMBLING [None]
  - SUICIDE ATTEMPT [None]
